FAERS Safety Report 11989201 (Version 2)
Quarter: 2016Q1

REPORT INFORMATION
  Report Type: Report from Study
  Country: AU (occurrence: AU)
  Receive Date: 20160202
  Receipt Date: 20160303
  Transmission Date: 20160526
  Serious: Yes (Other)
  Sender: FDA-Public Use
  Company Number: AU-SA-2016SA015120

PATIENT
  Age: 66 Year
  Sex: Female

DRUGS (7)
  1. LEMTRADA [Suspect]
     Active Substance: ALEMTUZUMAB
     Route: 041
     Dates: start: 20160118, end: 20160122
  2. BACLOFEN. [Concomitant]
     Active Substance: BACLOFEN
  3. METHYLPREDNISOLONE. [Suspect]
     Active Substance: METHYLPREDNISOLONE
     Route: 065
     Dates: start: 20160118, end: 20160122
  4. ASPIRIN. [Concomitant]
     Active Substance: ASPIRIN
  5. FAMPYRA [Concomitant]
     Active Substance: DALFAMPRIDINE
  6. OMEGA 3 [Concomitant]
     Active Substance: OMEGA-3 FATTY ACIDS
  7. MOVICOL [Concomitant]
     Active Substance: POLYETHYLENE GLYCOL 3350\POTASSIUM CHLORIDE\SODIUM BICARBONATE\SODIUM CHLORIDE

REACTIONS (7)
  - Inflammation [Unknown]
  - Abasia [Recovered/Resolved]
  - Malaise [Recovering/Resolving]
  - Fatigue [Recovered/Resolved]
  - Weight decreased [Unknown]
  - Weight increased [Unknown]
  - Pyrexia [Recovered/Resolved]

NARRATIVE: CASE EVENT DATE: 201601
